FAERS Safety Report 8565677-8 (Version None)
Quarter: 2012Q3

REPORT INFORMATION
  Report Type: 
  Country: None (occurrence: None)
  Receive Date: 20120803
  Receipt Date: 20110926
  Transmission Date: 20120928
  Serious: No
  Sender: FDA-Public Use
  Company Number: US-ABBOTT-11P-163-0858590-00

PATIENT
  Sex: Female
  Weight: 79.45 kg

DRUGS (3)
  1. CRESTOR [Concomitant]
     Indication: BLOOD CHOLESTEROL
     Dosage: UNKNOWN
  2. TRICOR [Concomitant]
     Indication: BLOOD CHOLESTEROL
     Dosage: UNKNOWN
  3. NIASPAN [Suspect]
     Indication: BLOOD CHOLESTEROL

REACTIONS (1)
  - FLUSHING [None]
